FAERS Safety Report 8395970-3 (Version None)
Quarter: 2012Q2

REPORT INFORMATION
  Report Type: 
  Country: None (occurrence: None)
  Receive Date: 20120530
  Receipt Date: 20120521
  Transmission Date: 20120825
  Serious: Yes (Other)
  Sender: FDA-Public Use
  Company Number: JP-ROCHE-1072892

PATIENT
  Age: 67 Year
  Sex: Male

DRUGS (4)
  1. ISODINE [Concomitant]
     Dates: start: 20120501, end: 20120501
  2. LEVOBUNOLOL HYDROCHLORIDE [Concomitant]
  3. LUCENTIS [Suspect]
     Indication: AGE-RELATED MACULAR DEGENERATION
     Route: 050
     Dates: start: 20110401
  4. LUCENTIS [Suspect]
     Route: 050
     Dates: start: 20120501

REACTIONS (2)
  - VITREOUS OPACITIES [None]
  - VISUAL ACUITY REDUCED [None]
